FAERS Safety Report 12608089 (Version 1)
Quarter: 2016Q3

REPORT INFORMATION
  Report Type: Spontaneous
  Country: US (occurrence: US)
  Receive Date: 20160729
  Receipt Date: 20160729
  Transmission Date: 20161109
  Serious: Yes (Other)
  Sender: FDA-Public Use
  Company Number: US-TEVA-679392USA

PATIENT
  Sex: Male

DRUGS (2)
  1. VENLAFAXINE [Suspect]
     Active Substance: VENLAFAXINE HYDROCHLORIDE
     Indication: ANXIETY
  2. VENLAFAXINE [Suspect]
     Active Substance: VENLAFAXINE HYDROCHLORIDE
     Indication: DEPRESSION

REACTIONS (7)
  - Dysuria [Unknown]
  - Renal pain [Unknown]
  - Spinal nerve stimulator implantation [Unknown]
  - Anxiety [Unknown]
  - Sexual dysfunction [Unknown]
  - Spinal fusion surgery [Unknown]
  - Renal disorder [Unknown]
